FAERS Safety Report 6050689-9 (Version None)
Quarter: 2009Q1

REPORT INFORMATION
  Report Type: 
  Country: None (occurrence: None)
  Receive Date: 20090121
  Receipt Date: 20090108
  Transmission Date: 20090719
  Serious: Yes (Hospitalization, Other)
  Sender: FDA-Public Use
  Company Number: RENA-1000292

PATIENT
  Age: 65 Year
  Sex: Male

DRUGS (10)
  1. RENAGEL [Suspect]
     Indication: HYPERPHOSPHATAEMIA
     Dosage: ORAL
     Route: 048
     Dates: start: 20071010, end: 20081018
  2. HYDROCORTISONE (HYDROCORTISONE) [Concomitant]
  3. CODEINE PHOSPHATE (CODEINE PHOSPHATE) [Concomitant]
  4. CEFAZOLIN [Concomitant]
  5. ERYMYCIN (ERYTHROMYCIN STEARATE) [Concomitant]
  6. DEXAMETHASONE TAB [Concomitant]
  7. NEOMYCIN (NEOMYCIN) [Concomitant]
  8. OMEPRADEX (OMEPRAZOLE) [Concomitant]
  9. PAMIDRONATE DISODIUM [Concomitant]
  10. MEPERIDINE HCL [Concomitant]

REACTIONS (9)
  - ANAEMIA [None]
  - ASTHENIA [None]
  - CHEST DISCOMFORT [None]
  - DYSPNOEA [None]
  - HAEMODIALYSIS [None]
  - MALAISE [None]
  - PROCEDURAL PAIN [None]
  - RENAL CELL CARCINOMA [None]
  - RESPIRATORY ALKALOSIS [None]
